FAERS Safety Report 23047872 (Version 1)
Quarter: 2023Q4

REPORT INFORMATION
  Report Type: Report from Study
  Country: US (occurrence: US)
  Receive Date: 20231010
  Receipt Date: 20231010
  Transmission Date: 20240110
  Serious: Yes (Hospitalization)
  Sender: FDA-Public Use
  Company Number: US-ABBVIE-5441744

PATIENT
  Age: 58 Year
  Sex: Male

DRUGS (1)
  1. SKYRIZI [Suspect]
     Active Substance: RISANKIZUMAB-RZAA
     Indication: Psoriasis
     Route: 058
     Dates: start: 20221105

REACTIONS (6)
  - Renal disorder [Recovering/Resolving]
  - Atrial fibrillation [Unknown]
  - Peripheral swelling [Unknown]
  - Illness [Unknown]
  - Immunodeficiency [Unknown]
  - Meniscus injury [Unknown]

NARRATIVE: CASE EVENT DATE: 20230301
